FAERS Safety Report 23668775 (Version 2)
Quarter: 2024Q2

REPORT INFORMATION
  Report Type: Spontaneous
  Country: US (occurrence: US)
  Receive Date: 20240325
  Receipt Date: 20240404
  Transmission Date: 20240715
  Serious: No
  Sender: FDA-Public Use
  Company Number: US-BAYER-2024A037992

PATIENT
  Sex: Female

DRUGS (1)
  1. CLIMARA PRO [Suspect]
     Active Substance: ESTRADIOL\LEVONORGESTREL
     Indication: Hormone therapy
     Dosage: UNK
     Route: 062
     Dates: start: 20240227

REACTIONS (2)
  - Product adhesion issue [None]
  - Wrong technique in product usage process [None]
